FAERS Safety Report 14846184 (Version 1)
Quarter: 2018Q2

REPORT INFORMATION
  Report Type: Spontaneous
  Country: FR (occurrence: FR)
  Receive Date: 20180504
  Receipt Date: 20180504
  Transmission Date: 20180711
  Serious: Yes (Other)
  Sender: FDA-Public Use
  Company Number: FR-MERCK KGAA-2047191

PATIENT
  Age: 51 Year
  Sex: Female

DRUGS (1)
  1. NOVOTHYROX [Suspect]
     Active Substance: LEVOTHYROXINE SODIUM
     Indication: POST PROCEDURAL HYPOTHYROIDISM

REACTIONS (34)
  - Pain in extremity [None]
  - Fear [None]
  - Gait disturbance [None]
  - Suicidal ideation [None]
  - Hyperhidrosis [None]
  - Aggression [None]
  - Loss of personal independence in daily activities [None]
  - Overdose [None]
  - Abdominal pain upper [None]
  - Migraine [None]
  - Fatigue [None]
  - Irritability [None]
  - Mood altered [None]
  - Anhedonia [None]
  - Alopecia [None]
  - Musculoskeletal stiffness [None]
  - Thermophobia [None]
  - Blood thyroid stimulating hormone decreased [None]
  - Diarrhoea [None]
  - Loss of libido [None]
  - Dysstasia [None]
  - Oropharyngeal pain [None]
  - Apathy [None]
  - Palpitations [None]
  - Feeling hot [None]
  - Balance disorder [None]
  - Insomnia [None]
  - Negative thoughts [None]
  - Tremor [None]
  - Chest discomfort [None]
  - Dry throat [None]
  - Abdominal distension [None]
  - Amnesia [None]
  - Dizziness [None]

NARRATIVE: CASE EVENT DATE: 20170923
